APPROVED DRUG PRODUCT: PHENYTEK
Active Ingredient: PHENYTOIN SODIUM
Strength: 200MG EXTENDED
Dosage Form/Route: CAPSULE;ORAL
Application: A040298 | Product #002
Applicant: MYLAN PHARMACEUTICALS INC
Approved: Dec 6, 2001 | RLD: No | RS: No | Type: RX